FAERS Safety Report 10215006 (Version 1)
Quarter: 2014Q2

REPORT INFORMATION
  Report Type: Report from Study
  Country: US (occurrence: US)
  Receive Date: 20140603
  Receipt Date: 20140603
  Transmission Date: 20141212
  Serious: Yes (Other)
  Sender: FDA-Public Use
  Company Number: US-GILEAD-2014-0103916

PATIENT
  Sex: Male

DRUGS (1)
  1. RANOLAZINE [Suspect]
     Indication: ANGINA PECTORIS
     Dosage: 1000 MG, UNK
     Route: 065

REACTIONS (6)
  - Pneumonia [Unknown]
  - Hip arthroplasty [Unknown]
  - Surgery [Unknown]
  - Spinal disorder [Unknown]
  - Fall [Unknown]
  - Amnesia [Unknown]
